FAERS Safety Report 8480144-8 (Version None)
Quarter: 2012Q2

REPORT INFORMATION
  Report Type: 
  Country: None (occurrence: None)
  Receive Date: 20120629
  Receipt Date: 20120622
  Transmission Date: 20120825
  Serious: Yes (Hospitalization)
  Sender: FDA-Public Use
  Company Number: US-FRI-1000025961

PATIENT
  Sex: Female
  Weight: 82 kg

DRUGS (8)
  1. VIIBRYD [Suspect]
     Indication: MAJOR DEPRESSION
     Dosage: 10 MG
     Route: 048
     Dates: start: 20110812, end: 20110818
  2. RUM [Suspect]
  3. WELLBUTRIN [Concomitant]
     Dosage: 300 MG
     Route: 048
  4. LAMICTAL [Concomitant]
     Dosage: 200 MG
     Route: 048
  5. LORTAB [Suspect]
  6. HYDROCODONE BITARTRATE [Suspect]
  7. AMBIEN [Suspect]
  8. WINE [Suspect]

REACTIONS (2)
  - MULTIPLE DRUG OVERDOSE INTENTIONAL [None]
  - SUICIDE ATTEMPT [None]
